FAERS Safety Report 23145473 (Version 2)
Quarter: 2023Q4

REPORT INFORMATION
  Report Type: Spontaneous
  Country: ES (occurrence: ES)
  Receive Date: 20231103
  Receipt Date: 20231122
  Transmission Date: 20240109
  Serious: Yes (Hospitalization, Other)
  Sender: FDA-Public Use
  Company Number: ES-INSUD PHARMA-2310ES07604

PATIENT

DRUGS (2)
  1. ESTRADIOL [Suspect]
     Active Substance: ESTRADIOL
     Indication: Transgender hormonal therapy
     Dosage: PATCH, 100 MICROGRAMS EVERY 3 DAYS
     Route: 062
  2. CYPROTERONE ACETATE [Suspect]
     Active Substance: CYPROTERONE ACETATE
     Indication: Transgender hormonal therapy
     Dosage: 50 MG EVERY 12 HOURS
     Route: 065

REACTIONS (4)
  - Meningioma [Recovered/Resolved]
  - Headache [Recovered/Resolved]
  - Abnormal behaviour [Recovered/Resolved]
  - Neglect of personal appearance [Recovered/Resolved]
